FAERS Safety Report 14176521 (Version 2)
Quarter: 2017Q4

REPORT INFORMATION
  Report Type: Report from Study
  Country: US (occurrence: US)
  Receive Date: 20171110
  Receipt Date: 20171230
  Transmission Date: 20180321
  Serious: Yes (Death)
  Sender: FDA-Public Use
  Company Number: US-B.I. PHARMACEUTICALS,INC./RIDGEFIELD-2017-BI-059560

PATIENT
  Age: 74 Year
  Sex: Male

DRUGS (9)
  1. OFEV [Suspect]
     Active Substance: NINTEDANIB
     Route: 048
  2. SIMVASTATIN. [Concomitant]
     Active Substance: SIMVASTATIN
     Indication: BLOOD CHOLESTEROL INCREASED
     Dosage: STRENGTH: 80MG; FORMULATION: CAPLET
     Route: 048
     Dates: start: 2011
  3. SILDENAFIL CITRATE. [Concomitant]
     Active Substance: SILDENAFIL CITRATE
     Indication: FLUID RETENTION
     Dosage: STRENGTH: 100MG; FORMULATION: TABLET
     Route: 048
  4. POTASSIUM [Concomitant]
     Active Substance: POTASSIUM
     Indication: BLOOD POTASSIUM DECREASED
     Dosage: FORMULATION: TABLET;
     Route: 048
  5. OFEV [Suspect]
     Active Substance: NINTEDANIB
     Indication: IDIOPATHIC PULMONARY FIBROSIS
     Route: 048
     Dates: start: 201709
  6. METFORMIN [Concomitant]
     Active Substance: METFORMIN HYDROCHLORIDE
     Indication: DIABETES MELLITUS
     Dosage: STRENGTH: 500MG; FORMULATION: TABLET
     Route: 048
     Dates: start: 2012
  7. HYDROCODONE [Concomitant]
     Active Substance: HYDROCODONE
     Indication: ANALGESIC THERAPY
     Dosage: STRENGTH, UNIT AND DAILY DOSE: 5/325MG
     Route: 065
     Dates: start: 2013
  8. AMITRIPTYLINE [Concomitant]
     Active Substance: AMITRIPTYLINE
     Indication: PRODUCT USED FOR UNKNOWN INDICATION
     Dosage: STRENGTH: 50MG; FORMULATION: TABLET
     Route: 048
  9. OMEPRAZOLE. [Concomitant]
     Active Substance: OMEPRAZOLE
     Indication: GASTROOESOPHAGEAL REFLUX DISEASE
     Dosage: STRENGTH: 20MG; FORMULATION: CAPSULE
     Route: 048
     Dates: start: 1997

REACTIONS (2)
  - Death [Fatal]
  - Muscle spasms [Not Recovered/Not Resolved]

NARRATIVE: CASE EVENT DATE: 20171020
